FAERS Safety Report 7725024-8 (Version None)
Quarter: 2011Q3

REPORT INFORMATION
  Report Type: 
  Country: None (occurrence: None)
  Receive Date: 20110901
  Receipt Date: 20110817
  Transmission Date: 20111222
  Serious: Yes (Hospitalization, Other)
  Sender: FDA-Public Use
  Company Number: CH-NOVOPROD-333389

PATIENT

DRUGS (3)
  1. LIRAGLUTIDE FLEXPEN [Suspect]
     Indication: OBESITY
  2. AUGMENTIN '125' [Concomitant]
     Dosage: 1 G, UNK
  3. IBUPROFEN [Concomitant]
     Dosage: 400 MG, UNK

REACTIONS (1)
  - ABDOMINAL PAIN [None]
